FAERS Safety Report 20841605 (Version 2)
Quarter: 2022Q2

REPORT INFORMATION
  Report Type: Spontaneous
  Country: JP (occurrence: JP)
  Receive Date: 20220518
  Receipt Date: 20220617
  Transmission Date: 20220721
  Serious: Yes (Other)
  Sender: FDA-Public Use
  Company Number: JP-TAKEDA-2022TJP046436

PATIENT
  Age: 7 Decade
  Sex: Male

DRUGS (1)
  1. ALUNBRIG [Suspect]
     Active Substance: BRIGATINIB
     Indication: Non-small cell lung cancer
     Dosage: 120 MILLIGRAM
     Route: 048
     Dates: start: 20211201

REACTIONS (9)
  - Metastases to central nervous system [Unknown]
  - Muscle spasms [Unknown]
  - Blood creatine phosphokinase increased [Unknown]
  - Myalgia [Unknown]
  - Photosensitivity reaction [Unknown]
  - Cough [Unknown]
  - Malaise [Unknown]
  - Blood lactate dehydrogenase increased [Unknown]
  - Rash [Unknown]
